FAERS Safety Report 8485349-8 (Version None)
Quarter: 2012Q3

REPORT INFORMATION
  Report Type: 
  Country: None (occurrence: None)
  Receive Date: 20120703
  Receipt Date: 20120618
  Transmission Date: 20120928
  Serious: Yes (Death, Other)
  Sender: FDA-Public Use
  Company Number: ES-ROCHE-1038756

PATIENT

DRUGS (2)
  1. AVASTIN [Suspect]
     Indication: MALIGNANT GLIOMA
     Route: 065
  2. IRINOTECAN HCL [Suspect]
     Indication: MALIGNANT GLIOMA
     Route: 065

REACTIONS (17)
  - HAEMORRHAGE [None]
  - TUMOUR HAEMORRHAGE [None]
  - EMBOLISM [None]
  - NEUTROPENIA [None]
  - PULMONARY EMBOLISM [None]
  - ENCEPHALOMALACIA [None]
  - ASTHENIA [None]
  - DIARRHOEA [None]
  - SKIN TOXICITY [None]
  - NEUROTOXICITY [None]
  - COGNITIVE DISORDER [None]
  - PNEUMONIA [None]
  - MUCOSAL INFLAMMATION [None]
  - THROMBOCYTOPENIA [None]
  - DEEP VEIN THROMBOSIS [None]
  - HYPERTENSION [None]
  - INTESTINAL PERFORATION [None]
